FAERS Safety Report 15877870 (Version 1)
Quarter: 2019Q1

REPORT INFORMATION
  Report Type: Report from Study
  Country: NI (occurrence: NI)
  Receive Date: 20190128
  Receipt Date: 20190128
  Transmission Date: 20190417
  Serious: Yes (Hospitalization)
  Sender: FDA-Public Use
  Company Number: NI-SA-2019SA020119

PATIENT
  Age: 38 Year
  Sex: Male

DRUGS (2)
  1. APIDRA [Suspect]
     Active Substance: INSULIN GLULISINE
     Indication: DIABETES MELLITUS
     Dosage: 10 IU, EVERY 8 HOURS (Q8H)
     Route: 058
     Dates: start: 2009
  2. INSULIN GLARGINE [Suspect]
     Active Substance: INSULIN GLARGINE
     Indication: DIABETES MELLITUS
     Dosage: 26 IU, QD
     Route: 058
     Dates: start: 2009

REACTIONS (3)
  - Pancreatitis [Recovered/Resolved]
  - Stress [Recovered/Resolved]
  - Metabolic disorder [Recovered/Resolved]

NARRATIVE: CASE EVENT DATE: 2009
